FAERS Safety Report 26091595 (Version 1)
Quarter: 2025Q4

REPORT INFORMATION
  Report Type: Spontaneous
  Country: US (occurrence: US)
  Receive Date: 20251126
  Receipt Date: 20251126
  Transmission Date: 20260118
  Serious: Yes (Hospitalization, Other)
  Sender: ROCHE
  Company Number: US-ROCHE-10000405328

PATIENT
  Age: 57 Year
  Sex: Male

DRUGS (20)
  1. XOLAIR [Suspect]
     Active Substance: OMALIZUMAB
     Indication: Asthma
     Route: 058
     Dates: start: 202111
  2. XOLAIR [Suspect]
     Active Substance: OMALIZUMAB
     Route: 058
     Dates: start: 202111
  3. STELARA [Concomitant]
     Active Substance: USTEKINUMAB
  4. AIRSUPRA [Concomitant]
     Active Substance: ALBUTEROL SULFATE\BUDESONIDE
  5. CLOBETASOL [Concomitant]
     Active Substance: CLOBETASOL
  6. CLONAZEPAM [Concomitant]
     Active Substance: CLONAZEPAM
  7. EPINEPHRINE [Concomitant]
     Active Substance: EPINEPHRINE
  8. ESOMEPRAZOLE [Concomitant]
     Active Substance: ESOMEPRAZOLE
  9. FISH OIL [Concomitant]
     Active Substance: FISH OIL
  10. KETOROLAC [Concomitant]
     Active Substance: KETOROLAC TROMETHAMINE
  11. LEVALBUTEROL [Concomitant]
     Active Substance: LEVALBUTEROL
  12. LOSARTAN [Concomitant]
     Active Substance: LOSARTAN
  13. MELOXICAM [Concomitant]
     Active Substance: MELOXICAM
  14. MONTELUKAST [Concomitant]
     Active Substance: MONTELUKAST
  15. SILDENAFIL [Concomitant]
     Active Substance: SILDENAFIL
  16. STELARA [Concomitant]
     Active Substance: USTEKINUMAB
  17. TRIAMCINOLONE ACETONIDE [Concomitant]
     Active Substance: TRIAMCINOLONE ACETONIDE
  18. VITAMIN B12 [Concomitant]
     Active Substance: CYANOCOBALAMIN
  19. VITAMIN D3 [Concomitant]
     Active Substance: CHOLECALCIFEROL
  20. WEGOVY [Concomitant]
     Active Substance: SEMAGLUTIDE

REACTIONS (40)
  - Illness [Unknown]
  - Oral candidiasis [Unknown]
  - Endocrine disorder [Unknown]
  - Malaise [Unknown]
  - Fatigue [Unknown]
  - Gastritis [Unknown]
  - Depression [Unknown]
  - Rash pruritic [Unknown]
  - Back pain [Unknown]
  - Pneumonia [Unknown]
  - Oropharyngeal pain [Unknown]
  - Lipoma [Unknown]
  - Upper respiratory tract infection [Unknown]
  - Erectile dysfunction [Unknown]
  - Arnold-Chiari malformation [Unknown]
  - Hypothyroidism [Unknown]
  - Chest discomfort [Unknown]
  - Electrocardiogram ST segment abnormal [Unknown]
  - Gastrooesophageal reflux disease [Unknown]
  - Vitamin D decreased [Unknown]
  - Autoinflammatory disease [Unknown]
  - Epstein-Barr virus infection [Unknown]
  - Cholesteatoma [Unknown]
  - Arthralgia [Unknown]
  - Procedural pain [Unknown]
  - Mixed anxiety and depressive disorder [Unknown]
  - Obesity [Unknown]
  - Anxiety [Unknown]
  - Essential hypertension [Unknown]
  - Snoring [Unknown]
  - COVID-19 [Unknown]
  - Oligospermia [Unknown]
  - Nasal septum deviation [Unknown]
  - Asthma [Unknown]
  - Psoriasis [Unknown]
  - Diarrhoea [Unknown]
  - Abdominal pain [Unknown]
  - Hypoacusis [Unknown]
  - Cough [Unknown]
  - Wheezing [Unknown]

NARRATIVE: CASE EVENT DATE: 20231024
